FAERS Safety Report 24423510 (Version 1)
Quarter: 2024Q4

REPORT INFORMATION
  Report Type: Spontaneous
  Country: US (occurrence: US)
  Receive Date: 20241010
  Receipt Date: 20241010
  Transmission Date: 20250115
  Serious: No
  Sender: MYLAN
  Company Number: US-MYLANLABS-2024M1020278

PATIENT
  Age: 80 Year
  Sex: Female

DRUGS (1)
  1. CYCLOSPORINE [Suspect]
     Active Substance: CYCLOSPORINE
     Indication: Dry eye
     Dosage: UNK, BID (ONE DROP IN EACH EYE TWICE A DAY)
     Route: 065
     Dates: start: 20240301

REACTIONS (2)
  - Product colour issue [None]
  - Product quality issue [None]

NARRATIVE: CASE EVENT DATE: 20240301
